FAERS Safety Report 5703957-1 (Version None)
Quarter: 2008Q2

REPORT INFORMATION
  Report Type: 
  Country: None (occurrence: None)
  Receive Date: 20080414
  Receipt Date: 20080409
  Transmission Date: 20081010
  Serious: Yes (Hospitalization)
  Sender: FDA-Public Use
  Company Number: US-BRISTOL-MYERS SQUIBB COMPANY-14145080

PATIENT
  Age: 74 Year
  Sex: Female
  Weight: 73 kg

DRUGS (7)
  1. ERBITUX [Suspect]
     Indication: COLON CANCER
     Dosage: LAST DOSE RECEIVED ON 2 WKS AGO. NEXT SCHEDULED DOSE ON 14APR08.
     Route: 042
     Dates: start: 20080301
  2. BENADRYL [Concomitant]
     Indication: PREMEDICATION
     Route: 042
  3. GLIPIZIDE [Concomitant]
  4. ACTOS [Concomitant]
  5. CARDIZEM [Concomitant]
  6. ALTACE [Concomitant]
  7. TIMOPTIC [Concomitant]

REACTIONS (6)
  - BLOOD CALCIUM DECREASED [None]
  - BLOOD MAGNESIUM DECREASED [None]
  - BLOOD POTASSIUM DECREASED [None]
  - HAIR GROWTH ABNORMAL [None]
  - SKIN CHAPPED [None]
  - SKIN LESION [None]
